FAERS Safety Report 7950774-8 (Version None)
Quarter: 2011Q4

REPORT INFORMATION
  Report Type: 
  Country: None (occurrence: None)
  Receive Date: 20111125
  Receipt Date: 20111113
  Transmission Date: 20120403
  Serious: Yes (Other)
  Sender: FDA-Public Use
  Company Number: 2011SP053334

PATIENT
  Sex: Female

DRUGS (2)
  1. PEG-INTRON [Suspect]
     Indication: HEPATITIS C
     Dates: start: 20111031
  2. RIBAVIRIN [Suspect]
     Indication: HEPATITIS C
     Dates: start: 20111031

REACTIONS (3)
  - PHARYNGEAL OEDEMA [None]
  - SWOLLEN TONGUE [None]
  - INJECTION SITE ERYTHEMA [None]
